FAERS Safety Report 6195649-2 (Version None)
Quarter: 2009Q2

REPORT INFORMATION
  Report Type: 
  Country: None (occurrence: None)
  Receive Date: 20090519
  Receipt Date: 20090511
  Transmission Date: 20091009
  Serious: Yes (Death, Hospitalization)
  Sender: FDA-Public Use
  Company Number: US-GENENTECH-283064

PATIENT
  Age: 75 Year
  Sex: Female

DRUGS (4)
  1. BLINDED BEVACIZUMAB [Suspect]
     Indication: OVARIAN CANCER
     Dosage: 15 MG/KG, Q21D
     Route: 042
     Dates: end: 20090421
  2. BLINDED PLACEBO [Suspect]
     Indication: OVARIAN CANCER
     Dosage: 15 MG/KG, Q21D
     Route: 042
     Dates: end: 20090421
  3. PACLITAXEL [Suspect]
     Indication: OVARIAN CANCER
     Dosage: 175 MG/M2, Q21D
     Route: 042
     Dates: start: 20090113, end: 20090421
  4. CARBOPLATIN [Suspect]
     Indication: OVARIAN CANCER
     Dosage: 6 AUC, Q21D
     Route: 042
     Dates: start: 20090113, end: 20090421

REACTIONS (3)
  - OPPORTUNISTIC INFECTION [None]
  - PANCYTOPENIA [None]
  - PYREXIA [None]
